FAERS Safety Report 16922309 (Version 1)
Quarter: 2019Q4

REPORT INFORMATION
  Report Type: Spontaneous
  Country: US (occurrence: US)
  Receive Date: 20191016
  Receipt Date: 20191016
  Transmission Date: 20200122
  Serious: Yes (Hospitalization, Other)
  Sender: FDA-Public Use
  Company Number: US-ABBVIE-19K-163-2961066-00

PATIENT
  Age: 45 Year
  Sex: Female

DRUGS (1)
  1. HUMIRA [Suspect]
     Active Substance: ADALIMUMAB
     Indication: HIDRADENITIS
     Dosage: ONE TIME LOADING DOSE
     Route: 058
     Dates: start: 20190924, end: 20190924

REACTIONS (6)
  - Influenza like illness [Recovering/Resolving]
  - Dyspnoea [Recovering/Resolving]
  - Pericarditis [Unknown]
  - Pruritus [Unknown]
  - Pain [Recovering/Resolving]
  - Back pain [Recovering/Resolving]

NARRATIVE: CASE EVENT DATE: 20191008
